FAERS Safety Report 7033561-7 (Version None)
Quarter: 2010Q4

REPORT INFORMATION
  Report Type: 
  Country: None (occurrence: None)
  Receive Date: 20101007
  Receipt Date: 20100924
  Transmission Date: 20110411
  Serious: Yes (Hospitalization, Other)
  Sender: FDA-Public Use
  Company Number: PHHY2010FR65803

PATIENT
  Age: 32 Year
  Sex: Female

DRUGS (2)
  1. PARLODEL [Suspect]
     Indication: LACTATION INHIBITION THERAPY
     Dosage: 2.5 MG, BID
     Route: 048
     Dates: start: 20090728, end: 20090815
  2. EUPANTOL [Concomitant]
     Dosage: 40 MG (40 MG, 01 IN 01 D)
     Dates: start: 20090826

REACTIONS (7)
  - ABDOMINAL PAIN [None]
  - EOSINOPHILIA [None]
  - MYALGIA [None]
  - PURPURA [None]
  - SKIN HAEMORRHAGE [None]
  - VOMITING [None]
  - WHITE BLOOD CELL COUNT INCREASED [None]
